FAERS Safety Report 5118789-5 (Version None)
Quarter: 2006Q4

REPORT INFORMATION
  Report Type: 
  Country: None (occurrence: None)
  Receive Date: 20061002
  Receipt Date: 20060921
  Transmission Date: 20070319
  Serious: Yes (Other)
  Sender: FDA-Public Use
  Company Number: CA-ROCHE-464639

PATIENT
  Age: 52 Year
  Sex: Female

DRUGS (4)
  1. XENICAL [Suspect]
     Indication: WEIGHT CONTROL
     Route: 048
     Dates: start: 20060109, end: 20060215
  2. XENICAL [Suspect]
     Route: 048
     Dates: start: 20060301, end: 20060315
  3. KETOPROFEN [Concomitant]
     Route: 048
     Dates: start: 20040615
  4. MEDROSSIPROGESTERONE [Concomitant]
     Indication: HORMONE REPLACEMENT THERAPY
     Route: 048
     Dates: start: 20060115

REACTIONS (2)
  - GASTROINTESTINAL DISORDER [None]
  - GASTROINTESTINAL HAEMORRHAGE [None]
